FAERS Safety Report 19659578 (Version 3)
Quarter: 2021Q3

REPORT INFORMATION
  Report Type: Report from Study
  Country: None (occurrence: US)
  Receive Date: 20210804
  Receipt Date: 20210819
  Transmission Date: 20211014
  Serious: Yes (Other)
  Sender: FDA-Public Use
  Company Number: US-ABBVIE-21K-163-4021742-00

PATIENT
  Age: 59 Year
  Sex: Female
  Weight: 80.36 kg

DRUGS (3)
  1. SKYRIZI [Suspect]
     Active Substance: RISANKIZUMAB-RZAA
     Indication: PSORIASIS
     Dosage: 75MG/0.83ML
     Route: 058
     Dates: start: 202105
  2. COVID?19 VACCINE [Concomitant]
     Route: 030
     Dates: start: 202104, end: 202104
  3. COVID?19 VACCINE [Concomitant]
     Indication: COVID-19 IMMUNISATION
     Route: 030
     Dates: start: 202103, end: 202103

REACTIONS (9)
  - Transient ischaemic attack [Unknown]
  - Back injury [Unknown]
  - Lung disorder [Unknown]
  - Gait disturbance [Unknown]
  - Pneumonia [Not Recovered/Not Resolved]
  - Dysphonia [Unknown]
  - Myocardial infarction [Unknown]
  - Cardiac failure congestive [Not Recovered/Not Resolved]
  - Neck injury [Unknown]

NARRATIVE: CASE EVENT DATE: 2021
